FAERS Safety Report 9744425 (Version 2)
Quarter: 2013Q4

REPORT INFORMATION
  Report Type: Spontaneous
  Country: RU (occurrence: RU)
  Receive Date: 20131210
  Receipt Date: 20131210
  Transmission Date: 20140711
  Serious: Yes (Hospitalization)
  Sender: FDA-Public Use
  Company Number: PHHY2013RU139392

PATIENT
  Age: 3 Year
  Sex: Female

DRUGS (2)
  1. MONTELUKAST SANDOZ [Suspect]
     Indication: ASTHMA
     Dosage: 4 MG, UNK
     Route: 048
  2. MONTELUKAST SANDOZ [Suspect]
     Indication: RHINITIS ALLERGIC

REACTIONS (3)
  - Sleep disorder [Unknown]
  - Chills [Unknown]
  - Hallucination [Unknown]
